FAERS Safety Report 15709598 (Version 2)
Quarter: 2018Q4

REPORT INFORMATION
  Report Type: Report from Study
  Country: None (occurrence: CH)
  Receive Date: 20181211
  Receipt Date: 20181213
  Transmission Date: 20190205
  Serious: Yes (Death, Hospitalization)
  Sender: FDA-Public Use
  Company Number: CH-ABBVIE-18S-151-2585815-00

PATIENT
  Age: 75 Year
  Sex: Male

DRUGS (3)
  1. DUODOPA [Suspect]
     Active Substance: CARBIDOPA\LEVODOPA
     Indication: PARKINSON^S DISEASE
     Dosage: 1 CASSET / 24 H
     Route: 050
     Dates: start: 20150519, end: 20180808
  2. DUODOPA [Suspect]
     Active Substance: CARBIDOPA\LEVODOPA
     Dosage: MORNING DOSE 7ML,CONTINUOUS RATE DAY4.4ML/H,CONTINUOUS RATE NIGHT 2.3ML/H, EXTRA DOSE 2ML
     Route: 050
     Dates: start: 20180808, end: 20181206
  3. DUODOPA [Suspect]
     Active Substance: CARBIDOPA\LEVODOPA
     Dosage: MD: 7ML,CONTINUOUS RATE DAY 4.4ML/H, CONTINUOUS RATE NIGHT 2.3ML/H,ED: 0ML. 24H THERAPY
     Route: 050
     Dates: start: 20181206

REACTIONS (2)
  - Death [Fatal]
  - Infection [Unknown]

NARRATIVE: CASE EVENT DATE: 201812
